FAERS Safety Report 8946034 (Version 2)
Quarter: 2013Q1

REPORT INFORMATION
  Report Type: Spontaneous
  Country: US (occurrence: US)
  Receive Date: 20121204
  Receipt Date: 20130204
  Transmission Date: 20140127
  Serious: No
  Sender: FDA-Public Use
  Company Number: US-AMGEN-USASP2012072627

PATIENT
  Age: 38 Year
  Sex: Female
  Weight: 66.67 kg

DRUGS (1)
  1. ENBREL [Suspect]
     Indication: RHEUMATOID ARTHRITIS
     Dosage: 50 MG, QWK
     Route: 058
     Dates: start: 20120410, end: 20121023

REACTIONS (3)
  - Injection site cellulitis [Unknown]
  - Skin discolouration [Not Recovered/Not Resolved]
  - Wrong technique in drug usage process [Unknown]
